FAERS Safety Report 6258770-6 (Version None)
Quarter: 2009Q3

REPORT INFORMATION
  Report Type: 
  Country: None (occurrence: None)
  Receive Date: 20090707
  Receipt Date: 20090701
  Transmission Date: 20100115
  Serious: Yes (Disabling)
  Sender: FDA-Public Use
  Company Number: US-MERCK-0905USA02301

PATIENT
  Age: 57 Year
  Sex: Male
  Weight: 67 kg

DRUGS (48)
  1. ISENTRESS [Suspect]
     Indication: HIV INFECTION
     Route: 048
     Dates: start: 20081020
  2. ABACAVIR SULFATE [Concomitant]
     Indication: HIV INFECTION
     Route: 048
     Dates: start: 20060601
  3. EPIVIR [Concomitant]
     Indication: HIV INFECTION
     Route: 048
     Dates: start: 20060601
  4. SYNTHROID [Concomitant]
     Indication: THYROID DISORDER
     Route: 048
     Dates: start: 20060501, end: 20090422
  5. ELAVIL [Concomitant]
     Indication: DEPRESSION
     Route: 048
     Dates: start: 20080501, end: 20090430
  6. FLOMAX [Concomitant]
     Indication: BENIGN PROSTATIC HYPERPLASIA
     Route: 065
     Dates: start: 20071001
  7. HUMULIN R [Concomitant]
     Indication: DIABETES MELLITUS
     Route: 058
     Dates: start: 20060501
  8. AMBIEN [Concomitant]
     Indication: INSOMNIA
     Route: 048
     Dates: start: 20060501, end: 20090309
  9. AMBIEN [Concomitant]
     Route: 048
     Dates: start: 20090301, end: 20090323
  10. AMBIEN [Concomitant]
     Route: 048
     Dates: start: 20090301
  11. NORVASC [Concomitant]
     Indication: BLOOD PRESSURE
     Route: 048
     Dates: start: 20060501, end: 20090301
  12. NORVASC [Concomitant]
     Route: 048
     Dates: start: 20090309
  13. TOPROL-XL [Concomitant]
     Indication: BLOOD PRESSURE
     Route: 048
     Dates: start: 20060501, end: 20090301
  14. TOPROL-XL [Concomitant]
     Route: 048
     Dates: start: 20090301
  15. LEVITRA [Concomitant]
     Indication: ERECTILE DYSFUNCTION
     Route: 001
     Dates: start: 20060801, end: 20090228
  16. WELLBUTRIN XL [Concomitant]
     Indication: DEPRESSION
     Route: 048
     Dates: start: 20071001, end: 20090429
  17. WELLBUTRIN XL [Concomitant]
     Route: 048
     Dates: start: 20090401, end: 20090508
  18. ROGAINE [Concomitant]
     Indication: ALOPECIA
     Route: 048
     Dates: start: 20080501, end: 20090228
  19. VESICARE [Concomitant]
     Indication: HYPERTONIC BLADDER
     Route: 048
     Dates: start: 20070101, end: 20090228
  20. VESICARE [Concomitant]
     Route: 048
     Dates: start: 20090319
  21. LYRICA [Concomitant]
     Indication: PAIN
     Route: 048
     Dates: start: 20080501, end: 20090513
  22. LASIX [Concomitant]
     Indication: POLYURIA
     Route: 048
     Dates: start: 20080501, end: 20090301
  23. LASIX [Concomitant]
     Route: 048
     Dates: start: 20090301, end: 20090310
  24. DIOVAN [Concomitant]
     Indication: BLOOD PRESSURE
     Route: 048
     Dates: start: 20060501, end: 20090228
  25. LAMICTAL [Concomitant]
     Indication: ANTICONVULSANT DRUG LEVEL
     Route: 048
     Dates: start: 20081101
  26. PRILOSEC [Concomitant]
     Indication: GASTROOESOPHAGEAL REFLUX DISEASE
     Route: 048
     Dates: start: 20090204
  27. TACROLIMUS [Concomitant]
     Indication: IMMUNE SYSTEM DISORDER
     Route: 048
     Dates: start: 20090302, end: 20090301
  28. TACROLIMUS [Concomitant]
     Route: 048
     Dates: start: 20090316, end: 20090301
  29. TACROLIMUS [Concomitant]
     Route: 048
     Dates: start: 20090416, end: 20090401
  30. TACROLIMUS [Concomitant]
     Route: 048
     Dates: start: 20090429
  31. TACROLIMUS [Concomitant]
     Route: 048
     Dates: start: 20090323, end: 20090401
  32. CELLCEPT [Concomitant]
     Indication: IMMUNE SYSTEM DISORDER
     Route: 048
     Dates: start: 20090228, end: 20090301
  33. CELLCEPT [Concomitant]
     Route: 048
     Dates: start: 20090316
  34. VALCYTE [Concomitant]
     Indication: PROPHYLAXIS
     Route: 048
     Dates: start: 20090304
  35. BACTRIM DS [Concomitant]
     Indication: PROPHYLAXIS
     Route: 048
     Dates: start: 20090304
  36. PROTONIX [Concomitant]
     Indication: GASTROOESOPHAGEAL REFLUX DISEASE
     Route: 048
     Dates: start: 20090303, end: 20090304
  37. PEPCID [Concomitant]
     Indication: GASTROOESOPHAGEAL REFLUX DISEASE
     Route: 048
     Dates: start: 20090228, end: 20090304
  38. PREDNISONE [Concomitant]
     Indication: IMMUNE SYSTEM DISORDER
     Route: 048
     Dates: start: 20090309
  39. CALCITRIOL [Concomitant]
     Indication: ROUTINE HEALTH MAINTENANCE
     Route: 048
     Dates: start: 20090305, end: 20090317
  40. SIMVASTATIN [Concomitant]
     Indication: BLOOD CHOLESTEROL
     Route: 048
     Dates: start: 20090305
  41. ULTRAM [Concomitant]
     Indication: PAIN
     Route: 048
     Dates: start: 20090305, end: 20090401
  42. NOVOLOG [Concomitant]
     Indication: DIABETES MELLITUS
     Route: 058
     Dates: start: 20090317, end: 20090501
  43. NOVOLOG [Concomitant]
     Route: 058
     Dates: start: 20090512
  44. TRAZODONE HYDROCHLORIDE [Concomitant]
     Route: 048
     Dates: start: 20090418, end: 20090524
  45. TRICOR [Concomitant]
     Indication: BLOOD CHOLESTEROL
     Route: 048
     Dates: start: 20090412
  46. CENTRUM [Concomitant]
     Indication: ROUTINE HEALTH MAINTENANCE
     Route: 048
     Dates: start: 20080501, end: 20090228
  47. VITAMIN D (UNSPECIFIED) [Concomitant]
     Indication: ROUTINE HEALTH MAINTENANCE
     Route: 048
     Dates: start: 20080501, end: 20090228
  48. ASPIRIN [Concomitant]
     Indication: CARDIAC DISORDER
     Route: 048
     Dates: start: 20090302

REACTIONS (10)
  - ABDOMINAL DISCOMFORT [None]
  - BALANCE DISORDER [None]
  - DIARRHOEA [None]
  - DRUG INTERACTION [None]
  - DYSARTHRIA [None]
  - DYSURIA [None]
  - FATIGUE [None]
  - GASTROOESOPHAGEAL REFLUX DISEASE [None]
  - MEMORY IMPAIRMENT [None]
  - POLLAKIURIA [None]
